FAERS Safety Report 5099546-5 (Version None)
Quarter: 2006Q3

REPORT INFORMATION
  Report Type: 
  Country: None (occurrence: None)
  Receive Date: 20060906
  Receipt Date: 20060825
  Transmission Date: 20061208
  Serious: Yes (Other)
  Sender: FDA-Public Use
  Company Number: 2006104907

PATIENT
  Age: 42 Year
  Sex: Female

DRUGS (7)
  1. CELEBREX [Suspect]
     Indication: DRUG USE FOR UNKNOWN INDICATION
     Dosage: 200 MG (200 MG, 1 IN 1 D), ORAL
     Route: 048
  2. LYRICA [Suspect]
     Indication: BACK DISORDER
     Dosage: 150 MG (50 MG, 3 IN 1 D), ORAL
     Route: 048
     Dates: start: 20060601
  3. LYRICA [Suspect]
     Indication: NEURALGIA
     Dosage: 150 MG (50 MG, 3 IN 1 D), ORAL
     Route: 048
     Dates: start: 20060601
  4. METHADONE HCL [Suspect]
     Indication: BACK PAIN
     Dates: end: 20060101
  5. CYMBALTA [Concomitant]
  6. PREVACID [Concomitant]
  7. AMITRIPTYLINE HCL [Concomitant]

REACTIONS (15)
  - ABDOMINAL DISTENSION [None]
  - ABDOMINAL PAIN UPPER [None]
  - COLITIS [None]
  - CONSTIPATION [None]
  - DIARRHOEA [None]
  - DRUG DEPENDENCE [None]
  - ENDOSCOPY UPPER GASTROINTESTINAL TRACT ABNORMAL [None]
  - FLATULENCE [None]
  - GASTRIC DISORDER [None]
  - GASTROINTESTINAL DISORDER [None]
  - NEURALGIA [None]
  - OVARIAN CYST [None]
  - REFUSAL OF TREATMENT BY PATIENT [None]
  - SCAR [None]
  - WEIGHT INCREASED [None]
